FAERS Safety Report 23615520 (Version 1)
Quarter: 2024Q1

REPORT INFORMATION
  Report Type: Spontaneous
  Country: FR (occurrence: FR)
  Receive Date: 20240311
  Receipt Date: 20240311
  Transmission Date: 20240409
  Serious: Yes (Hospitalization, Other)
  Sender: FDA-Public Use
  Company Number: None

PATIENT
  Age: 68 Year
  Sex: Female

DRUGS (21)
  1. VALGANCICLOVIR [Suspect]
     Active Substance: VALGANCICLOVIR
     Indication: Opportunistic infection prophylaxis
     Dosage: DAILY DOSE: 1 DOSAGE FORM
     Route: 048
     Dates: start: 20230106, end: 20240117
  2. BACTRIM [Suspect]
     Active Substance: SULFAMETHOXAZOLE\TRIMETHOPRIM
     Indication: Opportunistic infection prophylaxis
     Route: 048
     Dates: start: 20230106, end: 20240116
  3. PREDNISOLONE SODIUM METASULFOBENZOATE [Concomitant]
     Active Substance: PREDNISOLONE SODIUM METAZOATE
     Dosage: 1 IN MORNING?DAILY DOSE: 1 DOSAGE FORM
  4. EVEROLIMUS [Concomitant]
     Active Substance: EVEROLIMUS
     Dosage: 2 MORNING AND EVENING?DAILY DOSE: 4 DOSAGE FORM
  5. TACROLIMUS [Concomitant]
     Active Substance: TACROLIMUS
     Dosage: 1 AT 8 AM?DAILY DOSE: 1 DOSAGE FORM
  6. CELLCEPT [Concomitant]
     Active Substance: MYCOPHENOLATE MOFETIL
     Dosage: 1 AT 7H AND 19H?DAILY DOSE: 2 DOSAGE FORM
  7. ZOPICLONE [Concomitant]
     Active Substance: ZOPICLONE
     Indication: Insomnia
  8. MIANSERIN [Concomitant]
     Active Substance: MIANSERIN
     Dosage: 1 AT 18H?DAILY DOSE: 1 DOSAGE FORM
  9. FUROSEMIDE [Concomitant]
     Active Substance: FUROSEMIDE
     Dosage: 1 AT 8H
  10. PANTOPRAZOLE [Concomitant]
     Active Substance: PANTOPRAZOLE
     Dosage: 1 AT 18H
  11. LOPERAMIDE [Concomitant]
     Active Substance: LOPERAMIDE
     Indication: Diarrhoea
     Dosage: TID/ IF DIARRHOEA?DAILY DOSE: 3 DOSAGE FORM
  12. MONTMORILLONITE [Concomitant]
     Active Substance: MONTMORILLONITE
     Indication: Diarrhoea
     Dosage: TID/ 1 SACHET IF DIARRHOEA?DAILY DOSE: 3 DOSAGE FORM
  13. POTASSIUM CHLORIDE [Concomitant]
     Active Substance: POTASSIUM CHLORIDE
     Dosage: 2 MORNING AND EVENING ?DAILY DOSE: 4 DOSAGE FORM
  14. SPASFON [Concomitant]
     Indication: Abdominal pain
     Dosage: 2 IF ABDOMINAL PAIN?DAILY DOSE: 2 DOSAGE FORM
  15. SPASFON [Concomitant]
     Indication: Abdominal pain
     Dosage: MAX 3 TIMES PER DAY.?DAILY DOSE: 3 DOSAGE FORM
  16. ENTECAVIR [Concomitant]
     Active Substance: ENTECAVIR
     Dosage: 0.5 TO 8 H
  17. AZITHROMYCIN [Concomitant]
     Active Substance: AZITHROMYCIN
     Dosage: 1 MONDAY, WEDNESDAY, FRIDAY
  18. CALCIUM [Concomitant]
     Active Substance: CALCIUM
     Dosage: 2 TO 12 HOURS
  19. CHOLECALCIFEROL [Concomitant]
     Active Substance: CHOLECALCIFEROL
     Dosage: 1 AMPOULE, 1ST OF THE MONTH
  20. FOSFOMYCIN TROMETHAMINE [Concomitant]
     Active Substance: FOSFOMYCIN TROMETHAMINE
     Dosage: 1 SACHET, ONCE A WEEK
  21. ELIQUIS [Concomitant]
     Active Substance: APIXABAN
     Dosage: 1 MORNING AND EVENING ?DAILY DOSE: 2 DOSAGE FORM

REACTIONS (4)
  - Agranulocytosis [Recovered/Resolved]
  - Leukopenia [Unknown]
  - Pseudomonas infection [Unknown]
  - Off label use [Recovered/Resolved]

NARRATIVE: CASE EVENT DATE: 20230106
